FAERS Safety Report 18931051 (Version 1)
Quarter: 2021Q1

REPORT INFORMATION
  Report Type: Not Available
  Country: US (occurrence: US)
  Receive Date: 20210223
  Receipt Date: 20210223
  Transmission Date: 20210420
  Serious: No
  Sender: FDA-Public Use
  Company Number: US-NEUROCRINE BIOSCIENCES INC.-2021NBI00698

PATIENT
  Age: 43 Year
  Sex: Female

DRUGS (3)
  1. RASAGILINE. [Concomitant]
     Active Substance: RASAGILINE
  2. BIKTARVY [Concomitant]
     Active Substance: BICTEGRAVIR SODIUM\EMTRICITABINE\TENOFOVIR ALAFENAMIDE FUMARATE
  3. ONGENTYS [Suspect]
     Active Substance: OPICAPONE
     Indication: PARKINSON^S DISEASE
     Dosage: EVERY NIGHT AT BEDTIME
     Route: 048
     Dates: start: 202012

REACTIONS (2)
  - Dyskinesia [Unknown]
  - Adverse event [Unknown]
